FAERS Safety Report 16423114 (Version 1)
Quarter: 2019Q2

REPORT INFORMATION
  Report Type: Spontaneous
  Country: US (occurrence: US)
  Receive Date: 20190612
  Receipt Date: 20190612
  Transmission Date: 20190711
  Serious: No
  Sender: FDA-Public Use
  Company Number: US-COVIS PHARMA B.V.-2018COV03673

PATIENT
  Sex: Male

DRUGS (6)
  1. AUBAGIO [Suspect]
     Active Substance: TERIFLUNOMIDE
  2. FLOMAX [Suspect]
     Active Substance: TAMSULOSIN HYDROCHLORIDE
  3. PRILOSEC [Suspect]
     Active Substance: OMEPRAZOLE MAGNESIUM
  4. IMIPRAMINE [Concomitant]
     Active Substance: IMIPRAMINE
  5. KLONOPIN [Suspect]
     Active Substance: CLONAZEPAM
  6. GABAPENTIN. [Concomitant]
     Active Substance: GABAPENTIN

REACTIONS (5)
  - Anxiety [Unknown]
  - Feeling abnormal [Unknown]
  - Hypertension [Unknown]
  - Fatigue [Unknown]
  - Dizziness [Unknown]
